FAERS Safety Report 9230938 (Version 1)
Quarter: 2013Q2

REPORT INFORMATION
  Report Type: Report from Study
  Country: US (occurrence: US)
  Receive Date: 20130415
  Receipt Date: 20130415
  Transmission Date: 20140414
  Serious: Yes (Other)
  Sender: FDA-Public Use
  Company Number: US-ROCHE-1212373

PATIENT
  Sex: Male

DRUGS (1)
  1. CELLCEPT [Suspect]
     Indication: GLOMERULONEPHRITIS CHRONIC
     Route: 048

REACTIONS (2)
  - Renal impairment [Unknown]
  - Malaise [Unknown]
